FAERS Safety Report 4745703-4 (Version None)
Quarter: 2005Q3

REPORT INFORMATION
  Report Type: 
  Country: None (occurrence: None)
  Receive Date: 20050811
  Receipt Date: 20050804
  Transmission Date: 20060218
  Serious: Yes (Hospitalization)
  Sender: FDA-Public Use
  Company Number: USA-2005-0020903

PATIENT
  Age: 5 Year
  Sex: Female

DRUGS (1)
  1. CEFDITOREN PIVOXIL (SIMILAR TO NDA 21-222)(CEFDITOREN PIVOXIL) OTHER [Suspect]
     Indication: STREPTOCOCCAL INFECTION
     Dosage: 159 MG, DAILY, ORAL
     Route: 048
     Dates: start: 20050710, end: 20050711

REACTIONS (3)
  - GENERALISED ERYTHEMA [None]
  - PYREXIA [None]
  - RASH [None]
